FAERS Safety Report 17892785 (Version 2)
Quarter: 2021Q2

REPORT INFORMATION
  Report Type: Spontaneous
  Country: US (occurrence: US)
  Receive Date: 20200613
  Receipt Date: 20210629
  Transmission Date: 20210717
  Serious: No
  Sender: FDA-Public Use
  Company Number: US-TEVA-2020-US-1247063

PATIENT
  Age: 25 Year
  Sex: Female

DRUGS (1)
  1. NECON [Suspect]
     Active Substance: ETHINYL ESTRADIOL\NORETHINDRONE
     Route: 065
     Dates: start: 201906

REACTIONS (4)
  - Dysmenorrhoea [Unknown]
  - Endometriosis [Unknown]
  - Treatment noncompliance [Unknown]
  - Abdominal pain lower [Recovered/Resolved with Sequelae]

NARRATIVE: CASE EVENT DATE: 2019
